FAERS Safety Report 12725019 (Version 2)
Quarter: 2016Q3

REPORT INFORMATION
  Report Type: Spontaneous
  Country: US (occurrence: US)
  Receive Date: 20160908
  Receipt Date: 20160928
  Transmission Date: 20161109
  Serious: No
  Sender: FDA-Public Use
  Company Number: US-PFIZER INC-2016420860

PATIENT
  Sex: Male

DRUGS (2)
  1. VIAGRA [Suspect]
     Active Substance: SILDENAFIL CITRATE
     Dosage: 1 DF, WHOLE PILL (100 MG EVERY 2 WEEKS)
  2. VIAGRA [Suspect]
     Active Substance: SILDENAFIL CITRATE
     Indication: ERECTILE DYSFUNCTION
     Dosage: 1/2 (HALF) PILL
     Dates: start: 2015

REACTIONS (2)
  - Tremor [Not Recovered/Not Resolved]
  - Somnolence [Not Recovered/Not Resolved]
